FAERS Safety Report 6823383-1 (Version None)
Quarter: 2010Q3

REPORT INFORMATION
  Report Type: 
  Country: None (occurrence: None)
  Receive Date: 20100708
  Receipt Date: 20100628
  Transmission Date: 20110219
  Serious: Yes (Other)
  Sender: FDA-Public Use
  Company Number: SE-PFIZER INC-2010080705

PATIENT
  Sex: Male

DRUGS (1)
  1. CHAMPIX [Suspect]
     Indication: SMOKING CESSATION THERAPY
     Dosage: UNK

REACTIONS (5)
  - BEDRIDDEN [None]
  - CHEST DISCOMFORT [None]
  - OFF LABEL USE [None]
  - PHARYNGEAL OEDEMA [None]
  - PYREXIA [None]
